FAERS Safety Report 9066502 (Version 1)
Quarter: 2013Q1

REPORT INFORMATION
  Report Type: Report from Study
  Country: US (occurrence: US)
  Receive Date: 20130131
  Receipt Date: 20130131
  Transmission Date: 20140127
  Serious: No
  Sender: FDA-Public Use
  Company Number: US-ABBOTT-12P-163-1016538-00

PATIENT
  Age: 28 Year
  Sex: Female
  Weight: 76.27 kg

DRUGS (18)
  1. HUMIRA [Suspect]
     Indication: COLITIS ULCERATIVE
     Route: 050
     Dates: start: 20071102, end: 20080708
  2. PRENATAL VITAMINS [Concomitant]
     Indication: PRODUCT USED FOR UNKNOWN INDICATION
     Dosage: 1 PILL ONCE DAILY
     Route: 048
     Dates: start: 20071102, end: 20080731
  3. FOLIC ACID [Concomitant]
     Indication: FOLATE DEFICIENCY
     Route: 048
     Dates: start: 20071102, end: 20080731
  4. TEA [Concomitant]
     Indication: PRODUCT USED FOR UNKNOWN INDICATION
     Dosage: 1 SERVING ONCE A WEEK
     Route: 048
     Dates: start: 20071102, end: 20080731
  5. CAFFEINE [Concomitant]
     Indication: PRODUCT USED FOR UNKNOWN INDICATION
     Dosage: COKE
     Route: 048
     Dates: start: 20071102, end: 20080501
  6. CAFFEINE [Concomitant]
     Dosage: 1 SERVING ONCE A MONTH
     Route: 048
     Dates: start: 20080502, end: 20080731
  7. PREDNISONE [Concomitant]
     Indication: COLITIS ULCERATIVE
     Route: 048
     Dates: start: 20071102, end: 20080731
  8. PROGESTERONE [Concomitant]
     Indication: PREGNANCY
     Dosage: 1 SHOT ONCE DAILY
     Route: 050
     Dates: start: 20071102, end: 20080103
  9. PROGESTERONE [Concomitant]
     Route: 048
     Dates: start: 20071102, end: 20080110
  10. ESTRACE [Concomitant]
     Indication: PREGNANCY
     Route: 048
     Dates: start: 20071102, end: 20080103
  11. BABY ASPIRIN [Concomitant]
     Indication: PREGNANCY
     Route: 048
     Dates: start: 20071102, end: 20080708
  12. TUMS [Concomitant]
     Indication: DYSPEPSIA
     Dosage: 6.5 PILLS ONCE DAILY
     Route: 048
     Dates: start: 20071102, end: 20080103
  13. FISH OIL [Concomitant]
     Indication: COLITIS
     Dosage: 1 PILL ONCE DAILY
     Route: 048
     Dates: start: 20071102, end: 20080731
  14. VERSED [Concomitant]
     Indication: IN VITRO FERTILISATION
     Dates: start: 20071114, end: 20071114
  15. FENTANYL [Concomitant]
     Indication: IN VITRO FERTILISATION
     Dates: start: 20071114, end: 20071114
  16. PROPOFOL [Concomitant]
     Indication: IN VITRO FERTILISATION
     Dates: start: 20071114, end: 20071114
  17. LUPRON [Concomitant]
     Indication: IN VITRO FERTILISATION
     Route: 048
     Dates: start: 20071102, end: 20071103
  18. LUPRON [Concomitant]
     Route: 048
     Dates: start: 20071104, end: 20071117

REACTIONS (5)
  - Vaginal haemorrhage [Recovered/Resolved]
  - Dyspepsia [Unknown]
  - Headache [Recovered/Resolved]
  - Discomfort [Recovered/Resolved]
  - Glucose tolerance test abnormal [Unknown]
